FAERS Safety Report 24905263 (Version 3)
Quarter: 2025Q2

REPORT INFORMATION
  Report Type: Spontaneous
  Country: US (occurrence: US)
  Receive Date: 20250130
  Receipt Date: 20250527
  Transmission Date: 20250717
  Serious: Yes (Other)
  Sender: PFIZER
  Company Number: US-PFIZER INC-202400223028

PATIENT
  Age: 76 Year
  Sex: Female
  Weight: 72.12 kg

DRUGS (4)
  1. XALKORI [Suspect]
     Active Substance: CRIZOTINIB
     Dosage: 250 MG, 2X/DAY (TAKE 1 CAPSULE BY MOUTH TWICE A DAY)
     Route: 048
     Dates: start: 20240416
  2. XALKORI [Suspect]
     Active Substance: CRIZOTINIB
     Dosage: 250 MG, 1X/DAY
     Route: 048
     Dates: start: 20250117
  3. XALKORI [Suspect]
     Active Substance: CRIZOTINIB
     Dosage: 250 MG, 2X/DAY
     Route: 048
  4. MAGNESIUM GLYCINATE [Concomitant]
     Active Substance: MAGNESIUM GLYCINATE

REACTIONS (6)
  - Hysterectomy [Unknown]
  - Intentional product misuse [Unknown]
  - Initial insomnia [Unknown]
  - Sleep disorder [Unknown]
  - Condition aggravated [Unknown]
  - Weight increased [Unknown]

NARRATIVE: CASE EVENT DATE: 20250101
